FAERS Safety Report 8608675-8 (Version None)
Quarter: 2012Q3

REPORT INFORMATION
  Report Type: 
  Country: None (occurrence: None)
  Receive Date: 20120821
  Receipt Date: 20120806
  Transmission Date: 20120928
  Serious: Yes (Hospitalization)
  Sender: FDA-Public Use
  Company Number: US-ALEXION-A201201159

PATIENT
  Sex: Female

DRUGS (2)
  1. SOLIRIS [Suspect]
     Indication: HAEMOLYTIC URAEMIC SYNDROME
     Dosage: UNK
     Route: 042
     Dates: start: 20120304
  2. SOLIRIS [Suspect]
     Dosage: 1200 MG, EVERY 10 DAYS
     Route: 042
     Dates: start: 20120505

REACTIONS (5)
  - HAPTOGLOBIN ABNORMAL [None]
  - ABDOMINAL PAIN [None]
  - MENORRHAGIA [None]
  - HAEMATEMESIS [None]
  - BLOOD CREATININE ABNORMAL [None]
